FAERS Safety Report 12299390 (Version 1)
Quarter: 2016Q2

REPORT INFORMATION
  Report Type: Spontaneous
  Country: US (occurrence: None)
  Receive Date: 20160422
  Receipt Date: 20160422
  Transmission Date: 20160815
  Serious: Yes (Other)
  Sender: FDA-Public Use
  Company Number: None

PATIENT
  Age: 28 Year
  Sex: Female
  Weight: 92.9 kg

DRUGS (2)
  1. VENOFER [Suspect]
     Active Substance: IRON SUCROSE
     Indication: IRON DEFICIENCY ANAEMIA
     Route: 042
     Dates: start: 20160122
  2. ATORVASTATIN [Concomitant]
     Active Substance: ATORVASTATIN

REACTIONS (8)
  - Altered state of consciousness [None]
  - Blood pressure decreased [None]
  - Nausea [None]
  - Fall [None]
  - Joint swelling [None]
  - Vomiting [None]
  - Diarrhoea [None]
  - Joint injury [None]

NARRATIVE: CASE EVENT DATE: 20160122
